FAERS Safety Report 8317807-0 (Version None)
Quarter: 2012Q2

REPORT INFORMATION
  Report Type: 
  Country: None (occurrence: None)
  Receive Date: 20120427
  Receipt Date: 20120419
  Transmission Date: 20120825
  Serious: Yes (Hospitalization)
  Sender: FDA-Public Use
  Company Number: US-BAYER-2011-094724

PATIENT
  Age: 49 Year
  Sex: Female
  Weight: 63.492 kg

DRUGS (1)
  1. YAZ [Suspect]
     Indication: MENOPAUSE
     Dosage: UNK
     Dates: start: 20090701, end: 20090711

REACTIONS (22)
  - PAIN [None]
  - MEMORY IMPAIRMENT [None]
  - NAUSEA [None]
  - DISTURBANCE IN ATTENTION [None]
  - CEREBRAL INFARCTION [None]
  - CONFUSIONAL STATE [None]
  - HYPOAESTHESIA [None]
  - ANXIETY [None]
  - EMOTIONAL DISTRESS [None]
  - ABASIA [None]
  - MOVEMENT DISORDER [None]
  - IMPAIRED REASONING [None]
  - GENERAL PHYSICAL HEALTH DETERIORATION [None]
  - VISUAL IMPAIRMENT [None]
  - DISORIENTATION [None]
  - SPEECH DISORDER [None]
  - COGNITIVE DISORDER [None]
  - VISION BLURRED [None]
  - HEMIPARESIS [None]
  - ABNORMAL BEHAVIOUR [None]
  - APHASIA [None]
  - HEMIANOPIA [None]
